FAERS Safety Report 10229492 (Version 6)
Quarter: 2014Q3

REPORT INFORMATION
  Report Type: Spontaneous
  Country: JP (occurrence: JP)
  Receive Date: 20140611
  Receipt Date: 20140722
  Transmission Date: 20150326
  Serious: Yes (Death)
  Sender: FDA-Public Use
  Company Number: PHHY2014JP070928

PATIENT
  Age: 48 Year
  Sex: Female

DRUGS (3)
  1. METHYCOBAL [Concomitant]
     Active Substance: METHYLCOBALAMIN
     Indication: MULTIPLE SCLEROSIS
     Dosage: 5 MG, TID
     Route: 048
     Dates: start: 20000325, end: 20140415
  2. PREDNISOLONE. [Concomitant]
     Active Substance: PREDNISOLONE
     Indication: MULTIPLE SCLEROSIS
     Dosage: 5 MG, TID
     Route: 048
     Dates: start: 20000325, end: 20140415
  3. IMUSERA [Suspect]
     Active Substance: FINGOLIMOD HYDROCHLORIDE
     Indication: MULTIPLE SCLEROSIS
     Dosage: 0.5 MG, QD
     Route: 048
     Dates: start: 20130903, end: 20140415

REACTIONS (3)
  - Shock haemorrhagic [Fatal]
  - Gastric ulcer [Fatal]
  - Upper gastrointestinal haemorrhage [Fatal]

NARRATIVE: CASE EVENT DATE: 20140415
